FAERS Safety Report 7173628-6 (Version None)
Quarter: 2010Q4

REPORT INFORMATION
  Report Type: 
  Country: None (occurrence: None)
  Receive Date: 20101219
  Receipt Date: 20100305
  Transmission Date: 20110411
  Serious: Yes (Other)
  Sender: FDA-Public Use
  Company Number: US-AMGEN-KDL397761

PATIENT

DRUGS (8)
  1. ENBREL [Suspect]
     Indication: PRODUCT USED FOR UNKNOWN INDICATION
     Dosage: 50 MG, 2 TIMES/WK
     Route: 058
  2. JANUMET [Concomitant]
     Dosage: UNK UNK, UNK
  3. ALPRAZOLAM [Concomitant]
     Dosage: 2 MG, UNK
  4. PREDNISONE [Concomitant]
     Dosage: 20 MG, UNK
  5. HYDROMORPHONE HYDROCHLORIDE [Concomitant]
     Dosage: 4 MG, UNK
  6. FOLIC ACID [Concomitant]
     Dosage: 1 MG, UNK
  7. AZATHIOPRINE [Concomitant]
     Dosage: 50 MG, UNK
  8. POTASSIUM [Concomitant]
     Dosage: 25 MEQ, UNK

REACTIONS (3)
  - CHEST PAIN [None]
  - DYSPNOEA [None]
  - OROPHARYNGEAL PAIN [None]
